FAERS Safety Report 5279415-8 (Version None)
Quarter: 2007Q1

REPORT INFORMATION
  Report Type: 
  Country: None (occurrence: None)
  Receive Date: 20070328
  Receipt Date: 20070316
  Transmission Date: 20070707
  Serious: Yes (Other)
  Sender: FDA-Public Use
  Company Number: PHHO2007AR05261

PATIENT
  Age: 70 Year
  Sex: Female

DRUGS (1)
  1. ZELMAC / HTF 919A [Suspect]
     Indication: IRRITABLE BOWEL SYNDROME
     Dosage: 1 TABLET
     Route: 048
     Dates: start: 20030101

REACTIONS (2)
  - GALLBLADDER DISORDER [None]
  - PROLAPSE REPAIR [None]
